FAERS Safety Report 16243076 (Version 10)
Quarter: 2020Q1

REPORT INFORMATION
  Report Type: Report from Study
  Country: CA (occurrence: CA)
  Receive Date: 20190426
  Receipt Date: 20200226
  Transmission Date: 20200409
  Serious: Yes (Other)
  Sender: FDA-Public Use
  Company Number: CA-ROCHE-2305351

PATIENT
  Age: 48 Year
  Sex: Male

DRUGS (4)
  1. OCREVUS [Suspect]
     Active Substance: OCRELIZUMAB
     Dosage: 300MG/10ML
     Route: 042
  2. OCREVUS [Suspect]
     Active Substance: OCRELIZUMAB
     Indication: RELAPSING-REMITTING MULTIPLE SCLEROSIS
     Dosage: 300 MG AT DAY 0 AND 14, THEN 600 MG EVERY 6 MONTH
     Route: 042
     Dates: start: 20190326
  3. ACETAMINOPHEN. [Concomitant]
     Active Substance: ACETAMINOPHEN
     Dosage: 2 X 500 MG,
     Route: 065
  4. FAMPYRA [Concomitant]
     Active Substance: DALFAMPRIDINE

REACTIONS (14)
  - Herpes zoster [Not Recovered/Not Resolved]
  - Medication error [Unknown]
  - Herpes zoster [Recovered/Resolved]
  - Fatigue [Unknown]
  - Micturition disorder [Unknown]
  - Influenza [Not Recovered/Not Resolved]
  - Urinary retention [Not Recovered/Not Resolved]
  - Incorrect dose administered [Unknown]
  - Herpes zoster [Recovered/Resolved]
  - Eczema [Not Recovered/Not Resolved]
  - Pollakiuria [Unknown]
  - Sensation of foreign body [Not Recovered/Not Resolved]
  - Dysphonia [Not Recovered/Not Resolved]
  - Immunosuppression [Unknown]

NARRATIVE: CASE EVENT DATE: 201904
